FAERS Safety Report 12985225 (Version 2)
Quarter: 2016Q4

REPORT INFORMATION
  Report Type: Report from Study
  Country: US (occurrence: US)
  Receive Date: 20161129
  Receipt Date: 20161215
  Transmission Date: 20170207
  Serious: Yes (Hospitalization)
  Sender: FDA-Public Use
  Company Number: US-BIOGEN-2016BI00320807

PATIENT
  Sex: Male

DRUGS (1)
  1. AVONEX [Suspect]
     Active Substance: INTERFERON BETA-1A
     Indication: MULTIPLE SCLEROSIS
     Dosage: DOSE: 30MCG OR 0.5MG
     Route: 030
     Dates: start: 20061105, end: 201606

REACTIONS (3)
  - Coronary artery disease [Unknown]
  - Myocardial oedema [Recovered/Resolved]
  - Fluid retention [Recovered/Resolved]
